FAERS Safety Report 15999103 (Version 2)
Quarter: 2022Q1

REPORT INFORMATION
  Report Type: Spontaneous
  Country: CH (occurrence: CH)
  Receive Date: 20190225
  Receipt Date: 20220203
  Transmission Date: 20220423
  Serious: Yes (Hospitalization, Other)
  Sender: FDA-Public Use
  Company Number: CH-SM-2019-10974

PATIENT
  Age: 60 Year
  Sex: Male
  Weight: 78.1 kg

DRUGS (10)
  1. DOXYCYCLINE [Interacting]
     Active Substance: DOXYCYCLINE
     Indication: Endocarditis Q fever
     Route: 048
     Dates: start: 20190125
  2. DOXYCYCLINE [Interacting]
     Active Substance: DOXYCYCLINE
     Route: 048
     Dates: start: 20190125
  3. PHENPROCOUMON [Interacting]
     Active Substance: PHENPROCOUMON
     Indication: Anticoagulant therapy
     Route: 048
     Dates: end: 20190207
  4. PHENPROCOUMON [Interacting]
     Active Substance: PHENPROCOUMON
     Route: 048
     Dates: end: 20190207
  5. PLAQUENIL [Concomitant]
     Active Substance: HYDROXYCHLOROQUINE SULFATE
     Route: 048
  6. METOPROLOL [Concomitant]
     Active Substance: METOPROLOL
     Route: 048
     Dates: end: 201902
  7. METOPROLOL [Concomitant]
     Active Substance: METOPROLOL
     Route: 048
     Dates: start: 201902
  8. RAMIPRIL [Concomitant]
     Active Substance: RAMIPRIL
     Route: 048
     Dates: end: 201902
  9. ATORVASTATIN [Concomitant]
     Active Substance: ATORVASTATIN
     Route: 048
  10. DAFALGAN [Concomitant]
     Active Substance: ACETAMINOPHEN
     Route: 048
     Dates: end: 201902

REACTIONS (4)
  - Drug interaction [Recovered/Resolved]
  - International normalised ratio increased [Recovered/Resolved]
  - Melaena [Recovered/Resolved]
  - Haemoglobin decreased [Not Recovered/Not Resolved]

NARRATIVE: CASE EVENT DATE: 20190125
